FAERS Safety Report 11519618 (Version 2)
Quarter: 2015Q3

REPORT INFORMATION
  Report Type: Report from Study
  Country: US (occurrence: US)
  Receive Date: 20150918
  Receipt Date: 20150928
  Transmission Date: 20151125
  Serious: No
  Sender: FDA-Public Use
  Company Number: US-AMGEN-USASL2015094408

PATIENT
  Age: 70 Year
  Sex: Female

DRUGS (1)
  1. ENBREL [Suspect]
     Active Substance: ETANERCEPT
     Indication: RHEUMATOID ARTHRITIS
     Dosage: 50 MG, QWK
     Route: 065
     Dates: start: 20150903

REACTIONS (10)
  - Cyst drainage [Not Recovered/Not Resolved]
  - Adverse drug reaction [Unknown]
  - Abdominal distension [Not Recovered/Not Resolved]
  - Arthropathy [Unknown]
  - Fluid retention [Not Recovered/Not Resolved]
  - Grip strength decreased [Unknown]
  - Dental operation [Unknown]
  - Synovial cyst [Not Recovered/Not Resolved]
  - Injection site bruising [Not Recovered/Not Resolved]
  - Injection site pain [Not Recovered/Not Resolved]

NARRATIVE: CASE EVENT DATE: 201509
